FAERS Safety Report 6547665-6 (Version None)
Quarter: 2010Q1

REPORT INFORMATION
  Report Type: 
  Country: None (occurrence: None)
  Receive Date: 20100123
  Receipt Date: 20100113
  Transmission Date: 20100710
  Serious: Yes (Hospitalization, Other)
  Sender: FDA-Public Use
  Company Number: US-JNJFOC-20100106034

PATIENT
  Sex: Female
  Weight: 63.5 kg

DRUGS (2)
  1. DURAGESIC-100 [Suspect]
     Indication: CROHN'S DISEASE
     Route: 062
  2. BENTYL [Concomitant]
     Indication: GASTRIC DISORDER
     Route: 048

REACTIONS (7)
  - ANAEMIA [None]
  - DEVICE LEAKAGE [None]
  - DRUG DOSE OMISSION [None]
  - FEELING ABNORMAL [None]
  - MENORRHAGIA [None]
  - NAUSEA [None]
  - PRODUCT QUALITY ISSUE [None]
